FAERS Safety Report 8208438-1 (Version None)
Quarter: 2012Q1

REPORT INFORMATION
  Report Type: 
  Country: None (occurrence: None)
  Receive Date: 20120314
  Receipt Date: 20120312
  Transmission Date: 20120608
  Serious: Yes (Other)
  Sender: FDA-Public Use
  Company Number: US-GLAXOSMITHKLINE-A0969477A

PATIENT
  Age: 27 Year
  Sex: Female

DRUGS (1)
  1. NICODERM CQ [Suspect]
     Indication: EX-TOBACCO USER
     Route: 062
     Dates: start: 20120310, end: 20120312

REACTIONS (6)
  - VAGINAL HAEMORRHAGE [None]
  - BACK PAIN [None]
  - OROPHARYNGEAL PAIN [None]
  - OROPHARYNGEAL DISCOMFORT [None]
  - PARAESTHESIA [None]
  - ABDOMINAL PAIN UPPER [None]
